FAERS Safety Report 4862629-6 (Version None)
Quarter: 2005Q4

REPORT INFORMATION
  Report Type: 
  Country: None (occurrence: None)
  Receive Date: 20051219
  Receipt Date: 20051208
  Transmission Date: 20060501
  Serious: Yes (Hospitalization)
  Sender: FDA-Public Use
  Company Number: 2005BI019635

PATIENT
  Age: 58 Year
  Sex: Female

DRUGS (6)
  1. AVONEX [Suspect]
     Indication: MULTIPLE SCLEROSIS
     Dosage: 30 UG; QW; IM
     Route: 030
     Dates: start: 19990902
  2. B12 [Concomitant]
  3. EFFEXOR [Concomitant]
  4. ZOCOR [Concomitant]
  5. LISINOPRIL [Concomitant]
  6. AGGRENOX [Concomitant]

REACTIONS (10)
  - BLINDNESS [None]
  - CEREBRAL INFARCTION [None]
  - CEREBROVASCULAR ACCIDENT [None]
  - CONFUSIONAL STATE [None]
  - DIZZINESS [None]
  - INNER EAR DISORDER [None]
  - OPTIC NEURITIS [None]
  - PARTIAL SEIZURES [None]
  - PETECHIAE [None]
  - VISUAL FIELD DEFECT [None]
